FAERS Safety Report 7018969-8 (Version None)
Quarter: 2010Q3

REPORT INFORMATION
  Report Type: 
  Country: None (occurrence: None)
  Receive Date: 20100928
  Receipt Date: 20100916
  Transmission Date: 20110219
  Serious: Yes (Other)
  Sender: FDA-Public Use
  Company Number: US-WYE-H17602410

PATIENT
  Sex: Male

DRUGS (7)
  1. PRISTIQ [Suspect]
     Indication: DEPRESSION
     Route: 048
     Dates: start: 20100701, end: 20100901
  2. PRISTIQ [Suspect]
     Route: 048
     Dates: start: 20100902
  3. PRISTIQ [Suspect]
     Dosage: ^TAKE 50 MG AND ALTERNATE TO 100 MG THE NEXT DAY^
     Route: 048
  4. SIMVASTATIN [Concomitant]
     Dosage: UNKNOWN
  5. VICODIN [Suspect]
     Indication: PAIN MANAGEMENT
     Route: 048
     Dates: start: 20100701
  6. LATANOPROST [Concomitant]
     Indication: GLAUCOMA
     Dosage: UNKNOWN
  7. PLAVIX [Concomitant]
     Dosage: UNKNOWN

REACTIONS (11)
  - AGGRESSION [None]
  - ANXIETY [None]
  - CONSTIPATION [None]
  - DRUG INEFFECTIVE [None]
  - FATIGUE [None]
  - IMPULSIVE BEHAVIOUR [None]
  - INSOMNIA [None]
  - INTENTIONAL DRUG MISUSE [None]
  - IRRITABILITY [None]
  - LIBIDO DECREASED [None]
  - SLEEP DISORDER [None]
